FAERS Safety Report 16517789 (Version 1)
Quarter: 2019Q3

REPORT INFORMATION
  Report Type: Spontaneous
  Country: CN (occurrence: CN)
  Receive Date: 20190702
  Receipt Date: 20190702
  Transmission Date: 20191004
  Serious: Yes (Other)
  Sender: FDA-Public Use
  Company Number: CN-BAYER-2019-124140

PATIENT
  Age: 79 Year
  Sex: Female
  Weight: 65 kg

DRUGS (1)
  1. AVELOX [Suspect]
     Active Substance: MOXIFLOXACIN HYDROCHLORIDE
     Indication: TUBERCULOSIS
     Dosage: 0.4 G, QD
     Route: 041
     Dates: start: 20190512, end: 20190613

REACTIONS (4)
  - Product use in unapproved indication [None]
  - Electrocardiogram QT prolonged [Recovering/Resolving]
  - Electrocardiogram ST-T change [Recovering/Resolving]
  - Off label use [None]

NARRATIVE: CASE EVENT DATE: 20190512
